FAERS Safety Report 12535471 (Version 1)
Quarter: 2016Q3

REPORT INFORMATION
  Report Type: Spontaneous
  Country: FR (occurrence: FR)
  Receive Date: 20160707
  Receipt Date: 20160707
  Transmission Date: 20161109
  Serious: Yes (Death, Other)
  Sender: FDA-Public Use
  Company Number: FR-009507513-2004-113609-NL

PATIENT

DRUGS (1)
  1. ORGARAN [Suspect]
     Active Substance: DANAPAROID SODIUM
     Indication: ANTICOAGULANT THERAPY

REACTIONS (1)
  - Cardiogenic shock [Fatal]
